FAERS Safety Report 6160608-2 (Version None)
Quarter: 2009Q2

REPORT INFORMATION
  Report Type: 
  Country: None (occurrence: None)
  Receive Date: 20090420
  Receipt Date: 20090415
  Transmission Date: 20091009
  Serious: Yes (Hospitalization, Other)
  Sender: FDA-Public Use
  Company Number: US-B.I. PHARMACEUTICALS,INC./RIDGEFIELD-2009-BP-04321BP

PATIENT
  Sex: Female

DRUGS (3)
  1. SPIRIVA [Suspect]
     Indication: ASTHMA
     Dosage: 18MCG
     Route: 055
     Dates: start: 20061201
  2. SPIRIVA [Suspect]
     Indication: BRONCHIAL DISORDER
  3. PROVENTIL-HFA [Concomitant]
     Indication: ASTHMA

REACTIONS (5)
  - GASTRIC HAEMORRHAGE [None]
  - LOSS OF CONSCIOUSNESS [None]
  - LUNG NEOPLASM MALIGNANT [None]
  - PERITONITIS [None]
  - POLYP [None]
